FAERS Safety Report 7879932-8 (Version None)
Quarter: 2011Q4

REPORT INFORMATION
  Report Type: 
  Country: None (occurrence: None)
  Receive Date: 20111101
  Receipt Date: 20111028
  Transmission Date: 20120403
  Serious: Yes (Life-Threatening, Hospitalization)
  Sender: FDA-Public Use
  Company Number: SK-MERCK-1110USA04404

PATIENT
  Age: 47 Year
  Sex: Female
  Weight: 65 kg

DRUGS (2)
  1. PRIMAXIN [Suspect]
     Indication: SEPSIS
     Route: 065
     Dates: start: 20110922, end: 20110925
  2. VFEND [Suspect]
     Indication: FUNGAL INFECTION
     Route: 065
     Dates: start: 20110922, end: 20110924

REACTIONS (3)
  - SOPOR [None]
  - ANXIETY [None]
  - CONVULSION [None]
